FAERS Safety Report 5441106-8 (Version None)
Quarter: 2007Q3

REPORT INFORMATION
  Report Type: 
  Country: None (occurrence: None)
  Receive Date: 20070831
  Receipt Date: 20070821
  Transmission Date: 20080115
  Serious: Yes (Other)
  Sender: FDA-Public Use
  Company Number: CA-PFIZER INC-2007064439

PATIENT
  Sex: Female

DRUGS (8)
  1. CHAMPIX [Suspect]
     Indication: SMOKING CESSATION THERAPY
     Route: 048
  2. BIAXIN XL [Concomitant]
  3. RABEPRAZOLE SODIUM [Concomitant]
     Dates: start: 20070715, end: 20070701
  4. NAPROXEN [Concomitant]
     Dates: start: 20070715, end: 20070701
  5. LAMISIL [Concomitant]
     Route: 048
  6. ELAVIL [Concomitant]
  7. ARTHROTEC [Concomitant]
     Route: 048
  8. TYLENOL W/ CODEINE NO. 3 [Concomitant]
     Route: 048

REACTIONS (2)
  - NO ADVERSE REACTION [None]
  - PHLEBITIS [None]
